FAERS Safety Report 6069241-4 (Version None)
Quarter: 2009Q1

REPORT INFORMATION
  Report Type: 
  Country: None (occurrence: None)
  Receive Date: 20090206
  Receipt Date: 20090128
  Transmission Date: 20090719
  Serious: Yes (Other)
  Sender: FDA-Public Use
  Company Number: PHHY2009BR03250

PATIENT
  Age: 46 Year
  Sex: Female

DRUGS (3)
  1. METHERGINE [Suspect]
     Dosage: 2 TABLETS DAILY
     Route: 048
  2. METHERGINE [Suspect]
     Dosage: UNK
     Route: 048
     Dates: start: 20081201
  3. HORMONES [Concomitant]
     Dosage: UNK

REACTIONS (6)
  - BLOOD GLUCOSE INCREASED [None]
  - DIABETES MELLITUS [None]
  - HYPERTENSION [None]
  - MENORRHAGIA [None]
  - NERVOUSNESS [None]
  - OEDEMA PERIPHERAL [None]
